FAERS Safety Report 15451245 (Version 1)
Quarter: 2018Q4

REPORT INFORMATION
  Report Type: Report from Study
  Country: NL (occurrence: NL)
  Receive Date: 20181001
  Receipt Date: 20181001
  Transmission Date: 20190204
  Serious: No
  Sender: FDA-Public Use
  Company Number: NL-IPSEN BIOPHARMACEUTICALS, INC.-2018-14654

PATIENT
  Age: 78 Year
  Sex: Male

DRUGS (1)
  1. SOMATULINE AUTOSOLUTION 120MG [Suspect]
     Active Substance: LANREOTIDE ACETATE
     Indication: NEUROENDOCRINE TUMOUR
     Route: 058
     Dates: start: 20170110

REACTIONS (1)
  - Sense of oppression [Recovering/Resolving]

NARRATIVE: CASE EVENT DATE: 20180829
